FAERS Safety Report 12335662 (Version 1)
Quarter: 2016Q2

REPORT INFORMATION
  Report Type: Spontaneous
  Country: US (occurrence: US)
  Receive Date: 20160505
  Receipt Date: 20160505
  Transmission Date: 20160815
  Serious: Yes (Other)
  Sender: FDA-Public Use
  Company Number: US-ROCHE-1718003

PATIENT
  Age: 13 Year
  Sex: Female
  Weight: 34.2 kg

DRUGS (13)
  1. CELLCEPT [Suspect]
     Active Substance: MYCOPHENOLATE MOFETIL\MYCOPHENOLATE MOFETIL HYDROCHLORIDE
     Indication: PRODUCT USED FOR UNKNOWN INDICATION
     Dosage: 200MG/ML SUSPENSION
     Route: 065
  2. LEVETIRACETAM. [Concomitant]
     Active Substance: LEVETIRACETAM
     Route: 048
  3. CHOLECALCIFEROL [Concomitant]
     Active Substance: CHOLECALCIFEROL
     Route: 048
  4. FLUTICASONE [Concomitant]
     Active Substance: FLUTICASONE\FLUTICASONE PROPIONATE
     Dosage: 2 PUFFS INHALE BY MOUTH USE WITH CHAMBER
     Route: 065
  5. INSULIN [Concomitant]
     Active Substance: INSULIN NOS
     Dosage: USE 1 EACH
     Route: 065
  6. MIRALAX [Concomitant]
     Active Substance: POLYETHYLENE GLYCOL 3350
     Route: 048
  7. PROGRAF [Concomitant]
     Active Substance: TACROLIMUS\TACROLIMUS ANHYDROUS
     Dosage: 3.6ML/3.6ML
     Route: 065
  8. NUTROPIN AQ [Suspect]
     Active Substance: SOMATROPIN
     Indication: BODY HEIGHT BELOW NORMAL
     Dosage: AT BEDTIME
     Route: 058
     Dates: start: 201311, end: 201603
  9. NORVASC [Concomitant]
     Active Substance: AMLODIPINE BESYLATE
     Dosage: 1MG/ML SUSPENSION
     Route: 065
  10. ALBUTEROL. [Concomitant]
     Active Substance: ALBUTEROL
     Dosage: 2 PUFFS BY MOUTH, 4 HOURS AS NEEDED WITH SPACER
     Route: 065
  11. ROCALTROL [Concomitant]
     Active Substance: CALCITRIOL
     Dosage: SOLUTION 1MCG/ML SOLUTION, MONDAY, WEDNESDAY AND FRIDAY
     Route: 048
  12. DYNACIRC [Concomitant]
     Active Substance: ISRADIPINE
     Dosage: AS NEEDED FOR BP SYSTOLIC}118
     Route: 048
  13. PRELONE [Concomitant]
     Active Substance: PREDNISOLONE
     Dosage: 15MG/5ML SOLUTION
     Route: 048

REACTIONS (2)
  - Therapeutic response decreased [Unknown]
  - Scoliosis [Not Recovered/Not Resolved]

NARRATIVE: CASE EVENT DATE: 20160223
